FAERS Safety Report 25808730 (Version 1)
Quarter: 2025Q3

REPORT INFORMATION
  Report Type: Spontaneous
  Country: BR (occurrence: BR)
  Receive Date: 20250916
  Receipt Date: 20250916
  Transmission Date: 20251021
  Serious: Yes (Other)
  Sender: UCB
  Company Number: BR-UCBSA-2025056655

PATIENT
  Age: 35 Year
  Sex: Female

DRUGS (4)
  1. CIMZIA [Suspect]
     Active Substance: CERTOLIZUMAB PEGOL
     Indication: Ankylosing spondylitis
     Route: 058
     Dates: start: 20250604
  2. FLUCONAZOLE [Concomitant]
     Active Substance: FLUCONAZOLE
     Indication: Candida infection
     Dosage: 150 MILLIGRAM, WEEKLY (QW) FOR 6 MONTHS
  3. BORIC ACID [Concomitant]
     Active Substance: BORIC ACID
     Indication: Candida infection
  4. UNICA [Concomitant]
     Indication: Candida infection

REACTIONS (1)
  - Cervicitis [Recovering/Resolving]

NARRATIVE: CASE EVENT DATE: 20250723
